FAERS Safety Report 5502355-3 (Version None)
Quarter: 2007Q4

REPORT INFORMATION
  Report Type: 
  Country: None (occurrence: None)
  Receive Date: 20071030
  Receipt Date: 20071019
  Transmission Date: 20080405
  Serious: Yes (Other)
  Sender: FDA-Public Use
  Company Number: US-PFIZER INC-2007076410

PATIENT
  Sex: Male
  Weight: 70.5 kg

DRUGS (4)
  1. VIAGRA [Suspect]
     Indication: ERECTILE DYSFUNCTION
  2. CAVERJECT [Suspect]
     Indication: ERECTILE DYSFUNCTION
  3. GLUCOPHAGE [Concomitant]
     Indication: DIABETES MELLITUS
  4. XANAX [Concomitant]
     Indication: ANXIETY

REACTIONS (4)
  - DEVICE MALFUNCTION [None]
  - DRUG EFFECT DECREASED [None]
  - PARAESTHESIA [None]
  - PROSTATE CANCER [None]
